FAERS Safety Report 14413789 (Version 1)
Quarter: 2018Q1

REPORT INFORMATION
  Report Type: Spontaneous
  Country: US (occurrence: US)
  Receive Date: 20180109
  Receipt Date: 20180109
  Transmission Date: 20180509
  Serious: Yes (Disabling, Other)
  Sender: FDA-Public Use
  Company Number: None

PATIENT
  Age: 47 Year
  Sex: Female
  Weight: 89.81 kg

DRUGS (4)
  1. HYDROCODONE [Concomitant]
     Active Substance: HYDROCODONE
  2. SERTRALINE [Concomitant]
     Active Substance: SERTRALINE HYDROCHLORIDE
  3. GABAPENTIN. [Concomitant]
     Active Substance: GABAPENTIN
  4. LUMBAR STERIOD INJECTION [Suspect]
     Active Substance: UNSPECIFIED INGREDIENT

REACTIONS (3)
  - Injection site pain [None]
  - Condition aggravated [None]
  - Arachnoiditis [None]

NARRATIVE: CASE EVENT DATE: 20160317
